FAERS Safety Report 8314315-8 (Version None)
Quarter: 2012Q1

REPORT INFORMATION
  Report Type: 
  Country: None (occurrence: None)
  Receive Date: 20120315
  Receipt Date: 20110413
  Transmission Date: 20120608
  Serious: Yes (Other)
  Sender: FDA-Public Use
  Company Number: PHHY2011US24691

PATIENT
  Age: 30 Year
  Sex: Female

DRUGS (9)
  1. GILENYA [Suspect]
     Indication: MULTIPLE SCLEROSIS
     Dosage: 0.5 MG, QD, ORAL
     Route: 048
     Dates: start: 20110309
  2. TRAZODONE HCL [Concomitant]
  3. VITAMIN E [Concomitant]
  4. FISH OIL [Concomitant]
  5. MONAVIE DRINK [Concomitant]
  6. TRAMADOL HCL [Concomitant]
  7. MAGNESIUM [Concomitant]
  8. MULTIVITAMINS (ASCORBIC ACID, ERGOCALCIFEROL, FOLIC ACID, NICOTINAMIDE [Concomitant]
  9. PROVIGIL [Concomitant]

REACTIONS (4)
  - NAUSEA [None]
  - MALAISE [None]
  - GENITAL HERPES [None]
  - ABDOMINAL DISCOMFORT [None]
